FAERS Safety Report 4932057-3 (Version None)
Quarter: 2006Q1

REPORT INFORMATION
  Report Type: 
  Country: None (occurrence: None)
  Receive Date: 20060303
  Receipt Date: 20060217
  Transmission Date: 20060701
  Serious: Yes (Hospitalization)
  Sender: FDA-Public Use
  Company Number: US-AMGEN-US169442

PATIENT
  Sex: Female
  Weight: 66.3 kg

DRUGS (14)
  1. ETANERCEPT - BLINDED [Suspect]
     Indication: RHEUMATOID ARTHRITIS
  2. METHOTREXATE [Suspect]
  3. HYDROXYCHLOROQUINE - BLINDED [Suspect]
  4. SULFASALAZINE - BLINDED [Suspect]
  5. LEVOTHYROXINE SODIUM [Concomitant]
  6. VALIUM [Concomitant]
  7. XANAX [Concomitant]
  8. NEURONTIN [Concomitant]
  9. KLONOPIN [Concomitant]
  10. LORTAB [Concomitant]
  11. AZATHIOPRINE [Concomitant]
  12. ELAVIL [Concomitant]
  13. KETOROLAC [Concomitant]
  14. METHADONE [Concomitant]

REACTIONS (3)
  - CONDITION AGGRAVATED [None]
  - DEMYELINATION [None]
  - NEUROPATHY [None]
